FAERS Safety Report 8215811-4 (Version None)
Quarter: 2012Q1

REPORT INFORMATION
  Report Type: 
  Country: None (occurrence: None)
  Receive Date: 20120316
  Receipt Date: 20120309
  Transmission Date: 20120608
  Serious: Yes (Other)
  Sender: FDA-Public Use
  Company Number: US-US-EMD SERONO, INC.-7118513

PATIENT
  Sex: Female
  Weight: 97 kg

DRUGS (2)
  1. REBIF [Suspect]
     Indication: MULTIPLE SCLEROSIS
     Route: 058
     Dates: start: 20100910
  2. ANTIDEPRESSANT [Concomitant]
     Indication: DEPRESSION

REACTIONS (6)
  - HEADACHE [None]
  - HERPES ZOSTER [None]
  - UTERINE POLYPECTOMY [None]
  - WEIGHT DECREASED [None]
  - STRESS [None]
  - DEPRESSION [None]
